FAERS Safety Report 19570420 (Version 1)
Quarter: 2021Q3

REPORT INFORMATION
  Report Type: Spontaneous
  Country: JP (occurrence: JP)
  Receive Date: 20210716
  Receipt Date: 20210716
  Transmission Date: 20211014
  Serious: Yes (Hospitalization, Other)
  Sender: FDA-Public Use
  Company Number: JP-PFIZER INC-2021831666

PATIENT
  Age: 5 Decade
  Sex: Male

DRUGS (1)
  1. XELJANZ [Suspect]
     Active Substance: TOFACITINIB CITRATE
     Indication: COLITIS ULCERATIVE
     Dosage: 20 MG, DAILY

REACTIONS (2)
  - Colitis ulcerative [Recovered/Resolved]
  - Cytomegalovirus enterocolitis [Recovered/Resolved]

NARRATIVE: CASE EVENT DATE: 2021
